FAERS Safety Report 5332709-X (Version None)
Quarter: 2007Q2

REPORT INFORMATION
  Report Type: 
  Country: None (occurrence: None)
  Receive Date: 20070523
  Receipt Date: 20070511
  Transmission Date: 20071010
  Serious: Yes (Other)
  Sender: FDA-Public Use
  Company Number: US-PFIZER INC-2007038837

PATIENT
  Sex: Female
  Weight: 113.63 kg

DRUGS (3)
  1. LIPITOR [Suspect]
     Indication: BLOOD CHOLESTEROL
     Dates: start: 20060501, end: 20060501
  2. KEPPRA [Concomitant]
  3. ARTHROTEC [Concomitant]

REACTIONS (1)
  - CONVULSION [None]
